FAERS Safety Report 6791279-X (Version None)
Quarter: 2010Q2

REPORT INFORMATION
  Report Type: 
  Country: None (occurrence: None)
  Receive Date: 20100624
  Receipt Date: 20100617
  Transmission Date: 20101027
  Serious: Yes (Hospitalization, Other)
  Sender: FDA-Public Use
  Company Number: IE-AMGEN-QUU406828

PATIENT
  Sex: Female
  Weight: 69 kg

DRUGS (13)
  1. NPLATE [Suspect]
     Indication: PRE-EXISTING DISEASE
     Dates: start: 20100321, end: 20100406
  2. PREDNISOLONE [Concomitant]
  3. VINCRISTINE [Concomitant]
     Dates: start: 20100304
  4. ASPARAGINASE [Concomitant]
     Dates: start: 20100304
  5. NEUPOGEN [Concomitant]
     Route: 058
     Dates: start: 20100322, end: 20100402
  6. TAZOCIN (LEDERLE) [Concomitant]
     Route: 042
     Dates: start: 20100323, end: 20100330
  7. RANITIDINE [Concomitant]
     Route: 048
     Dates: start: 20100306, end: 20100402
  8. VALTREX [Concomitant]
     Route: 048
     Dates: start: 20100305, end: 20100402
  9. NEORECORMON [Concomitant]
     Route: 058
     Dates: start: 20100317, end: 20100406
  10. CYCLOKAPRON [Concomitant]
     Route: 048
     Dates: start: 20100322, end: 20100326
  11. TEICOPLANIN [Concomitant]
     Dates: start: 20100319, end: 20100329
  12. ALLOPURINOL [Concomitant]
     Route: 048
     Dates: start: 20100318, end: 20100402
  13. GALFER [Concomitant]
     Route: 048
     Dates: start: 20100227, end: 20100406

REACTIONS (3)
  - HEPATIC FAILURE [None]
  - JAUNDICE CHOLESTATIC [None]
  - VIRAL INFECTION [None]
